FAERS Safety Report 6072546-4 (Version None)
Quarter: 2009Q1

REPORT INFORMATION
  Report Type: 
  Country: None (occurrence: None)
  Receive Date: 20090210
  Receipt Date: 20090203
  Transmission Date: 20090719
  Serious: Yes (Other)
  Sender: FDA-Public Use
  Company Number: US-AVENTIS-200910917US

PATIENT
  Age: 73 Year
  Sex: Male

DRUGS (14)
  1. LANTUS [Suspect]
     Route: 058
     Dates: start: 20080701
  2. APIDRA [Suspect]
     Route: 058
     Dates: start: 20080701
  3. OPTICLIK (INSULIN INJECTION PEN) [Suspect]
  4. OPTICLIK (INSULIN INJECTION PEN) [Suspect]
  5. PROBENECID [Concomitant]
  6. FUROSEMIDE [Concomitant]
     Dosage: DOSE: 180 MG IN MORNING AND 80 MG EVENING
  7. COREG [Concomitant]
  8. SANCTURA [Concomitant]
  9. INSPRA                             /01613601/ [Concomitant]
  10. ASPIRIN [Concomitant]
  11. NIASPAN [Concomitant]
  12. BENICAR [Concomitant]
  13. VITAMIN B12 AMINO [Concomitant]
     Dosage: DOSE: UNK
  14. SPIRIVA [Concomitant]
     Dosage: DOSE: UNK

REACTIONS (3)
  - CONDITION AGGRAVATED [None]
  - MYOCARDIAL INFARCTION [None]
  - VISUAL ACUITY REDUCED [None]
